FAERS Safety Report 7751591-4 (Version None)
Quarter: 2011Q3

REPORT INFORMATION
  Report Type: 
  Country: None (occurrence: None)
  Receive Date: 20110914
  Receipt Date: 20110912
  Transmission Date: 20111222
  Serious: Yes (Other)
  Sender: FDA-Public Use
  Company Number: PHHY2011PL65973

PATIENT
  Sex: Female
  Weight: 84 kg

DRUGS (2)
  1. AFINITOR [Suspect]
     Indication: RENAL CANCER
     Dosage: 10 MG, DAILY
     Route: 048
     Dates: start: 20101214, end: 20110212
  2. AFINITOR [Suspect]

REACTIONS (7)
  - DIARRHOEA [None]
  - ARRHYTHMIA [None]
  - PALPITATIONS [None]
  - DRUG INTOLERANCE [None]
  - PYREXIA [None]
  - DIABETES MELLITUS [None]
  - HYPERGLYCAEMIA [None]
